FAERS Safety Report 9685401 (Version 1)
Quarter: 2013Q4

REPORT INFORMATION
  Report Type: Spontaneous
  Country: US (occurrence: US)
  Receive Date: 20131113
  Receipt Date: 20131113
  Transmission Date: 20140711
  Serious: Yes (Hospitalization, Other)
  Sender: FDA-Public Use
  Company Number: US-JNJFOC-20131102516

PATIENT
  Sex: Male
  Weight: 76.2 kg

DRUGS (11)
  1. XARELTO [Suspect]
     Indication: PULMONARY EMBOLISM
     Route: 048
     Dates: start: 201307, end: 201308
  2. XARELTO [Suspect]
     Indication: PULMONARY EMBOLISM
     Route: 048
     Dates: start: 201310, end: 2013
  3. XARELTO [Suspect]
     Indication: PULMONARY EMBOLISM
     Route: 048
     Dates: start: 2013
  4. XARELTO [Suspect]
     Indication: CEREBROVASCULAR ACCIDENT PROPHYLAXIS
     Route: 048
     Dates: start: 201307, end: 201308
  5. XARELTO [Suspect]
     Indication: CEREBROVASCULAR ACCIDENT PROPHYLAXIS
     Route: 048
     Dates: start: 201310, end: 2013
  6. XARELTO [Suspect]
     Indication: CEREBROVASCULAR ACCIDENT PROPHYLAXIS
     Route: 048
     Dates: start: 2013
  7. XARELTO [Suspect]
     Indication: ATRIAL FIBRILLATION
     Route: 048
     Dates: start: 201310, end: 2013
  8. XARELTO [Suspect]
     Indication: ATRIAL FIBRILLATION
     Route: 048
     Dates: start: 2013
  9. XARELTO [Suspect]
     Indication: ATRIAL FIBRILLATION
     Route: 048
     Dates: start: 201307, end: 201308
  10. DILTIAZEM SR [Concomitant]
     Route: 065
  11. SPIRONOLACTONE [Concomitant]
     Route: 065

REACTIONS (6)
  - Blood urine present [Recovered/Resolved]
  - Post procedural haemorrhage [Recovered/Resolved]
  - Benign neoplasm of bladder [Recovered/Resolved]
  - Pulmonary embolism [Recovered/Resolved]
  - Cough [Recovered/Resolved]
  - Drug prescribing error [Unknown]
